FAERS Safety Report 16150136 (Version 1)
Quarter: 2019Q2

REPORT INFORMATION
  Report Type: Spontaneous
  Country: US (occurrence: US)
  Receive Date: 20190403
  Receipt Date: 20190403
  Transmission Date: 20190711
  Serious: No
  Sender: FDA-Public Use
  Company Number: US-BIO PRODUCTS LABORATORY LTD-2065192

PATIENT
  Age: 15 Year
  Sex: Female

DRUGS (1)
  1. GENERIC IVIG [Suspect]
     Active Substance: HUMAN IMMUNOGLOBULIN G
     Indication: STEVENS-JOHNSON SYNDROME

REACTIONS (1)
  - Off label use [Recovered/Resolved]
